FAERS Safety Report 5106923-2 (Version None)
Quarter: 2006Q3

REPORT INFORMATION
  Report Type: 
  Country: None (occurrence: None)
  Receive Date: 20060913
  Receipt Date: 20060828
  Transmission Date: 20061208
  Serious: Yes (Death, Hospitalization)
  Sender: FDA-Public Use
  Company Number: FR200607002846

PATIENT
  Age: 70 Year
  Sex: Female
  Weight: 48 kg

DRUGS (10)
  1. FORTEO [Suspect]
     Indication: OSTEOPOROSIS
     Dosage: 20 UG, DAILY (1/D), SUBCUTANEOUS
     Route: 058
     Dates: start: 20051024, end: 20060623
  2. FORTEO [Concomitant]
  3. REQUIP [Concomitant]
  4. PRAZEPAM [Concomitant]
  5. LASIX [Concomitant]
  6. POTASSIUM CHLORIDE [Concomitant]
  7. VASTAREL (TRIMETAZIDINE HYDROCHLORIDE) [Concomitant]
  8. MOTILIUM [Concomitant]
  9. DAFALGAN (PARACETAMOL) [Concomitant]
  10. KAOLOGEAIS (KAOLIN, MAGNESIUM OXIDE, MAGNESIUM SULFATE, MEPROBAMATE, S [Concomitant]

REACTIONS (3)
  - ASPERGILLOSIS [None]
  - PNEUMONITIS [None]
  - PULMONARY FIBROSIS [None]
